FAERS Safety Report 8542750-1 (Version None)
Quarter: 2012Q3

REPORT INFORMATION
  Report Type: 
  Country: None (occurrence: None)
  Receive Date: 20120727
  Receipt Date: 20120718
  Transmission Date: 20120928
  Serious: Yes (Hospitalization)
  Sender: FDA-Public Use
  Company Number: US-BIOGENIDEC-2012BI010430

PATIENT
  Age: 28 Year
  Sex: Female

DRUGS (5)
  1. LAMICTAL [Concomitant]
     Indication: BIPOLAR DISORDER
     Route: 048
  2. TRAZODONE HYDROCHLORIDE [Concomitant]
     Indication: INSOMNIA
  3. PROTONIX [Concomitant]
     Indication: PROPHYLAXIS
     Route: 048
  4. LOVENOX [Concomitant]
     Route: 048
  5. TYSABRI [Suspect]
     Indication: MULTIPLE SCLEROSIS
     Route: 042
     Dates: start: 20110901

REACTIONS (7)
  - DIZZINESS [None]
  - MULTIPLE SCLEROSIS RELAPSE [None]
  - VITAMIN D DECREASED [None]
  - GAIT DISTURBANCE [None]
  - INSOMNIA [None]
  - FATIGUE [None]
  - VITAMIN B12 DECREASED [None]
